FAERS Safety Report 5708692-1 (Version None)
Quarter: 2008Q2

REPORT INFORMATION
  Report Type: 
  Country: None (occurrence: None)
  Receive Date: 20080417
  Receipt Date: 20080321
  Transmission Date: 20081010
  Serious: No
  Sender: FDA-Public Use
  Company Number: US-BOEHRINGER INGELHEIM GMBH, GERMANY-2008-BP-04573BP

PATIENT
  Sex: Male

DRUGS (1)
  1. CATAPRES [Suspect]
     Indication: TOURETTE'S DISORDER
     Route: 048
     Dates: start: 20080301

REACTIONS (3)
  - DRY MOUTH [None]
  - FATIGUE [None]
  - SOMNOLENCE [None]
